FAERS Safety Report 6820703-9 (Version None)
Quarter: 2010Q3

REPORT INFORMATION
  Report Type: 
  Country: None (occurrence: None)
  Receive Date: 20100707
  Receipt Date: 20100630
  Transmission Date: 20110219
  Serious: Yes (Hospitalization, Other)
  Sender: FDA-Public Use
  Company Number: US-WYE-H13105510

PATIENT
  Sex: Female
  Weight: 105.6 kg

DRUGS (7)
  1. TORISEL [Suspect]
     Indication: RENAL CELL CARCINOMA
     Route: 042
     Dates: start: 20091201, end: 20100112
  2. DIOVAN [Concomitant]
     Indication: HYPERTENSION
     Dosage: UNKNOWN
  3. SYNTHROID [Concomitant]
     Indication: HYPOTHYROIDISM
     Dates: start: 20080501
  4. POTASSIUM CHLORIDE [Concomitant]
  5. DARVOCET-N 100 [Concomitant]
     Indication: PAIN
     Dosage: UNKNOWN DOSE EVERY 4 HOURS AS NEEDED
     Dates: start: 20090201
  6. GLIBENCLAMIDE [Concomitant]
     Indication: DIABETES MELLITUS
     Dosage: UNKNOWN
  7. ATENOLOL [Concomitant]
     Indication: HYPERTENSION
     Dosage: UNKNOWN
     Dates: start: 20091001

REACTIONS (4)
  - CEREBROVASCULAR ACCIDENT [None]
  - CONVULSION [None]
  - HYPOKALAEMIA [None]
  - PANCYTOPENIA [None]
